FAERS Safety Report 6582510-4 (Version None)
Quarter: 2010Q1

REPORT INFORMATION
  Report Type: 
  Country: None (occurrence: None)
  Receive Date: 20100212
  Receipt Date: 20100212
  Transmission Date: 20100710
  Serious: No
  Sender: FDA-Public Use
  Company Number: None

PATIENT
  Age: 62 Year
  Sex: Male
  Weight: 92.9 kg

DRUGS (1)
  1. CEFIXIME [Suspect]
     Dosage: 1 GM EVERY DAY IV
     Route: 042
     Dates: start: 20091112, end: 20091114

REACTIONS (1)
  - RASH [None]
